FAERS Safety Report 24325341 (Version 1)
Quarter: 2024Q3

REPORT INFORMATION
  Report Type: Spontaneous
  Country: US (occurrence: US)
  Receive Date: 20240916
  Receipt Date: 20240916
  Transmission Date: 20241017
  Serious: Yes (Hospitalization)
  Sender: BRISTOL MYERS SQUIBB
  Company Number: US-BRISTOL-MYERS SQUIBB COMPANY-2024-146722

PATIENT
  Age: 33 Year
  Sex: Female

DRUGS (2)
  1. AUGTYRO [Suspect]
     Active Substance: REPOTRECTINIB
     Indication: Product used for unknown indication
     Dosage: FOR 14 DAYS
     Route: 048
  2. AUGTYRO [Suspect]
     Active Substance: REPOTRECTINIB
     Route: 048

REACTIONS (1)
  - Hospitalisation [Unknown]
